FAERS Safety Report 5154403-0 (Version None)
Quarter: 2006Q4

REPORT INFORMATION
  Report Type: 
  Country: None (occurrence: None)
  Receive Date: 20061120
  Receipt Date: 20061106
  Transmission Date: 20070319
  Serious: Yes (Other)
  Sender: FDA-Public Use
  Company Number: FR-ELI_LILLY_AND_COMPANY-FR200611001346

PATIENT
  Age: 76 Year
  Sex: Female

DRUGS (4)
  1. FORTEO [Suspect]
     Dosage: 20 UG, DAILY (1/D)
     Route: 058
     Dates: start: 20051108, end: 20060601
  2. FORTEO [Suspect]
     Dosage: 20 UG, DAILY (1/D)
     Route: 058
     Dates: start: 20060701, end: 20061001
  3. COZAAR [Concomitant]
     Indication: HYPERTENSION
  4. ALDACTAZINE [Concomitant]
     Indication: HYPERTENSION

REACTIONS (1)
  - RENAL FAILURE CHRONIC [None]
